FAERS Safety Report 7083805-0 (Version None)
Quarter: 2010Q4

REPORT INFORMATION
  Report Type: 
  Country: None (occurrence: None)
  Receive Date: 20101104
  Receipt Date: 20101103
  Transmission Date: 20110411
  Serious: Yes (Hospitalization)
  Sender: FDA-Public Use
  Company Number: ES-WYE-H18521910

PATIENT
  Sex: Male

DRUGS (1)
  1. SORAFENIB [Suspect]
     Indication: RENAL CANCER
     Route: 048
     Dates: start: 20100713

REACTIONS (2)
  - DYSPNOEA [None]
  - PLEURAL EFFUSION [None]
